FAERS Safety Report 4958159-3 (Version None)
Quarter: 2006Q1

REPORT INFORMATION
  Report Type: 
  Country: None (occurrence: None)
  Receive Date: 20060324
  Receipt Date: 20060313
  Transmission Date: 20060701
  Serious: Yes (Death, Hospitalization)
  Sender: FDA-Public Use
  Company Number: 2006029505

PATIENT
  Age: 69 Year
  Sex: Male
  Weight: 69.5 kg

DRUGS (9)
  1. SUTENT [Suspect]
     Indication: HEPATIC NEOPLASM MALIGNANT
     Dosage: 50 MG (50 MG, 4 WEEKS), ORAL
     Route: 048
     Dates: start: 20060216
  2. GINKOR FORT (GINKGO BILOBA, HEPTAMINOL HYDROCHLORIDE, TROXERUTIN) [Concomitant]
  3. ALDACTONE [Concomitant]
  4. METFORMIN HCL [Concomitant]
  5. ZOCOR [Concomitant]
  6. XATRAL (ALFUZOSIN) [Concomitant]
  7. TRASICOR (OXPRENOLOL HYDROCHLORIDE) [Concomitant]
  8. POTASSIUM CHLORIDE [Concomitant]
  9. PERMIXON (SERENOA REPENS) [Concomitant]

REACTIONS (4)
  - APHASIA [None]
  - BALANCE DISORDER [None]
  - HEPATIC ENCEPHALOPATHY [None]
  - PROTHROMBIN TIME RATIO INCREASED [None]
